FAERS Safety Report 19381623 (Version 1)
Quarter: 2021Q2

REPORT INFORMATION
  Report Type: Spontaneous
  Country: FR (occurrence: FR)
  Receive Date: 20210607
  Receipt Date: 20210607
  Transmission Date: 20210717
  Serious: Yes (Other)
  Sender: FDA-Public Use
  Company Number: FR-AZURITY PHARMACEUTICALS, INC.-2021AZY00050

PATIENT
  Age: 54 Year
  Sex: Male
  Weight: 63 kg

DRUGS (1)
  1. VANCOMYCIN HYDROCHLORIDE. [Suspect]
     Active Substance: VANCOMYCIN HYDROCHLORIDE
     Indication: SEPTIC SHOCK
     Dosage: 3000 MG/DAY DILUTED IN 5% GLUCOSE, 31.25 MG/ML AT A MAXIMAL DOSAGE OF 4ML/HOUR
     Route: 042

REACTIONS (4)
  - Cutaneous calcification [Recovered/Resolved]
  - Skin toxicity [Recovered/Resolved]
  - Skin necrosis [Recovered/Resolved]
  - Extravasation [Recovered/Resolved]
